FAERS Safety Report 7758911-5 (Version None)
Quarter: 2011Q3

REPORT INFORMATION
  Report Type: 
  Country: None (occurrence: None)
  Receive Date: 20110919
  Receipt Date: 20110907
  Transmission Date: 20111222
  Serious: Yes (Hospitalization)
  Sender: FDA-Public Use
  Company Number: US-BAYER-2011-040421

PATIENT
  Age: 20 Year
  Sex: Female
  Weight: 54.422 kg

DRUGS (5)
  1. ANTIBIOTICS [Concomitant]
     Dosage: UNK UNK, PRN
  2. YAZ [Suspect]
     Indication: MENSTRUATION IRREGULAR
  3. YAZ [Suspect]
     Indication: PREMENSTRUAL SYNDROME
     Dosage: UNK
     Dates: start: 20060101, end: 20101201
  4. YAZ [Suspect]
     Dosage: UNK
     Dates: end: 20101201
  5. NSAID'S [Concomitant]
     Dosage: UNK UNK, PRN

REACTIONS (2)
  - PULMONARY EMBOLISM [None]
  - PAIN [None]
